FAERS Safety Report 12627285 (Version 1)
Quarter: 2016Q3

REPORT INFORMATION
  Report Type: Spontaneous
  Country: US (occurrence: US)
  Receive Date: 20160805
  Receipt Date: 20160805
  Transmission Date: 20161109
  Serious: Yes (Hospitalization)
  Sender: FDA-Public Use
  Company Number: US-LUNDBECK-DKLU2017299

PATIENT
  Sex: Male

DRUGS (4)
  1. ONFI [Suspect]
     Active Substance: CLOBAZAM
     Dates: start: 201311, end: 201607
  2. ONFI [Suspect]
     Active Substance: CLOBAZAM
     Dates: start: 201607
  3. ONFI [Suspect]
     Active Substance: CLOBAZAM
     Indication: PRODUCT USED FOR UNKNOWN INDICATION
     Dates: start: 201311, end: 201607
  4. ONFI [Suspect]
     Active Substance: CLOBAZAM
     Dates: start: 201607

REACTIONS (2)
  - Surgery [Unknown]
  - Abdominal discomfort [Unknown]
